FAERS Safety Report 21266633 (Version 2)
Quarter: 2022Q3

REPORT INFORMATION
  Report Type: Report from Study
  Country: FR (occurrence: None)
  Receive Date: 20220829
  Receipt Date: 20220905
  Transmission Date: 20221027
  Serious: Yes (Death, Hospitalization)
  Sender: FDA-Public Use
  Company Number: 2022A297358

PATIENT
  Age: 22272 Day
  Sex: Male
  Weight: 67 kg

DRUGS (7)
  1. EVUSHELD [Suspect]
     Active Substance: CILGAVIMAB\TIXAGEVIMAB
     Indication: COVID-19 prophylaxis
     Dosage: TIXAGEVIMAB 150 MG/CILGAVIMAB 150 MG ONCE/SINGLE ADMINISTRATION
     Route: 030
     Dates: start: 20220202, end: 20220202
  2. IRBESARTAN [Concomitant]
     Active Substance: IRBESARTAN
     Dosage: 150MG IN THE MORNING
  3. BISOPROLOL [Concomitant]
     Active Substance: BISOPROLOL
     Indication: Hypertension
     Dosage: AT 5MG IN THE MORNING
     Dates: start: 20200529
  4. BISOPROLOL [Concomitant]
     Active Substance: BISOPROLOL
     Indication: Antifungal treatment
     Dosage: AT 5MG IN THE MORNING
     Dates: start: 20200529
  5. AZATHIOPRINE SODIUM [Concomitant]
     Active Substance: AZATHIOPRINE SODIUM
     Dosage: AT 50MG IN THE MORNING
  6. PROGRAF [Concomitant]
     Active Substance: TACROLIMUS
     Dosage: AT 4MG IN THE MORNING AND IN THE EVENING
  7. PREDNISONE [Concomitant]
     Active Substance: PREDNISONE
     Dosage: AT 10MG IN THE MORNING

REACTIONS (2)
  - Acute respiratory distress syndrome [Fatal]
  - Pneumocystis jirovecii pneumonia [Fatal]

NARRATIVE: CASE EVENT DATE: 20220615
